FAERS Safety Report 5358968-5 (Version None)
Quarter: 2007Q2

REPORT INFORMATION
  Report Type: 
  Country: None (occurrence: None)
  Receive Date: 20070615
  Receipt Date: 20070608
  Transmission Date: 20071010
  Serious: No
  Sender: FDA-Public Use
  Company Number: US-ASTRAZENECA-2007UW13850

PATIENT
  Age: 61 Year
  Sex: Female
  Weight: 99.8 kg

DRUGS (4)
  1. SEROQUEL [Suspect]
     Indication: SLEEP DISORDER
     Route: 048
     Dates: start: 20020101
  2. RANITIDINE [Concomitant]
  3. ASPIRIN [Concomitant]
  4. VITAMIN CAP [Concomitant]

REACTIONS (1)
  - BLOOD DISORDER [None]
